FAERS Safety Report 24795077 (Version 1)
Quarter: 2024Q4

REPORT INFORMATION
  Report Type: Spontaneous
  Country: CN (occurrence: CN)
  Receive Date: 20241231
  Receipt Date: 20241231
  Transmission Date: 20250114
  Serious: Yes (Death, Hospitalization, Other)
  Sender: JOHNSON AND JOHNSON
  Company Number: CN-SHANGHAI JOHNSON + JOHNSON PHARMACEUTICALS, LTD-20241206170

PATIENT

DRUGS (1)
  1. ACETAMINOPHEN [Suspect]
     Active Substance: ACETAMINOPHEN
     Indication: Product used for unknown indication
     Route: 065

REACTIONS (6)
  - Drug-induced liver injury [Fatal]
  - Acute kidney injury [Fatal]
  - Hepatic encephalopathy [Fatal]
  - Toxicity to various agents [Fatal]
  - Ascites [Fatal]
  - Infection [Fatal]
